FAERS Safety Report 4767834-5 (Version None)
Quarter: 2005Q3

REPORT INFORMATION
  Report Type: 
  Country: None (occurrence: None)
  Receive Date: 20050913
  Receipt Date: 20050901
  Transmission Date: 20060218
  Serious: Yes (Life-Threatening, Hospitalization)
  Sender: FDA-Public Use
  Company Number: 1-13113641

PATIENT
  Age: 24 Year
  Sex: Female

DRUGS (3)
  1. SULFAMETHOXAZOLE/ TRIMETHOPRIM TABLET 800/160MG. NDC 00677-0784-05 [Suspect]
     Indication: NASOPHARYNGITIS
     Dosage: BUT ^AS PRESCRIBED^, ORAL
     Route: 048
  2. FLURBIPROFEN [Concomitant]
  3. DYPHYLLINE/GUAIFENISIN 100 [Concomitant]

REACTIONS (10)
  - ABDOMINAL PAIN UPPER [None]
  - BLINDNESS [None]
  - CAESAREAN SECTION [None]
  - CHEST PAIN [None]
  - DRUG EXPOSURE DURING PREGNANCY [None]
  - DYSPNOEA [None]
  - HEARING IMPAIRED [None]
  - INTRA-UTERINE DEATH [None]
  - MEMORY IMPAIRMENT [None]
  - SHOCK [None]
